FAERS Safety Report 10406186 (Version 1)
Quarter: 2014Q3

REPORT INFORMATION
  Report Type: Spontaneous
  Country: US (occurrence: None)
  Receive Date: 20140822
  Receipt Date: 20140822
  Transmission Date: 20150326
  Serious: Yes (Hospitalization)
  Sender: FDA-Public Use
  Company Number: None

PATIENT
  Age: 82 Year
  Sex: Female
  Weight: 101 kg

DRUGS (13)
  1. KCL [Concomitant]
     Active Substance: POTASSIUM CHLORIDE
  2. SYNTHROID [Concomitant]
     Active Substance: LEVOTHYROXINE SODIUM
  3. PREDNISONE. [Suspect]
     Active Substance: PREDNISONE
     Indication: RASH GENERALISED
     Route: 048
     Dates: start: 201312, end: 20140403
  4. CLONIDINE. [Concomitant]
     Active Substance: CLONIDINE
  5. COUMADIN [Concomitant]
     Active Substance: WARFARIN SODIUM
  6. PRANDIN [Concomitant]
     Active Substance: REPAGLINIDE
  7. PRANDIN [Concomitant]
     Active Substance: REPAGLINIDE
  8. TRAMADOL [Concomitant]
     Active Substance: TRAMADOL
  9. TYLENOL [Concomitant]
     Active Substance: ACETAMINOPHEN
  10. DIOVAN [Concomitant]
     Active Substance: VALSARTAN
  11. DIAMOX SEQUELS [Concomitant]
     Active Substance: ACETAZOLAMIDE
  12. KEFLEX [Concomitant]
     Active Substance: CEPHALEXIN
  13. JANUVIA [Concomitant]
     Active Substance: SITAGLIPTIN PHOSPHATE

REACTIONS (3)
  - Dyspnoea [None]
  - Cough [None]
  - Oedema peripheral [None]

NARRATIVE: CASE EVENT DATE: 20140403
